FAERS Safety Report 13734208 (Version 2)
Quarter: 2017Q3

REPORT INFORMATION
  Report Type: Report from Study
  Country: US (occurrence: US)
  Receive Date: 20170708
  Receipt Date: 20170908
  Transmission Date: 20171127
  Serious: No
  Sender: FDA-Public Use
  Company Number: US-009507513-1706USA004439

PATIENT
  Age: 31 Year
  Sex: Female
  Weight: 68.93 kg

DRUGS (1)
  1. IMPLANON [Suspect]
     Active Substance: ETONOGESTREL
     Indication: CONTRACEPTION
     Dosage: 1 DF, CYCLICAL, IN LEFT ARM
     Route: 059
     Dates: start: 20161201, end: 20170522

REACTIONS (4)
  - Device deployment issue [Recovered/Resolved]
  - Device expulsion [Recovered/Resolved with Sequelae]
  - Suture rupture [Unknown]
  - Implant site irritation [Unknown]

NARRATIVE: CASE EVENT DATE: 201612
